FAERS Safety Report 19068709 (Version 3)
Quarter: 2022Q1

REPORT INFORMATION
  Report Type: Report from Study
  Country: US (occurrence: US)
  Receive Date: 20210329
  Receipt Date: 20220304
  Transmission Date: 20220423
  Serious: Yes (Other)
  Sender: FDA-Public Use
  Company Number: US-TAKEDA-2021TUS018743

PATIENT
  Sex: Male
  Weight: 75 kg

DRUGS (18)
  1. HUMAN IMMUNOGLOBULIN G [Suspect]
     Active Substance: HUMAN IMMUNOGLOBULIN G
     Indication: Hypogammaglobulinaemia
     Dosage: 8 GRAM, 1/WEEK
     Route: 058
  2. HUMAN IMMUNOGLOBULIN G [Suspect]
     Active Substance: HUMAN IMMUNOGLOBULIN G
     Indication: Blood immunoglobulin G decreased
     Dosage: 8 GRAM, 1/WEEK
     Route: 058
     Dates: start: 20210421
  3. OMEPRAZOLE [Concomitant]
     Active Substance: OMEPRAZOLE
  4. SYNTHROID [Concomitant]
     Active Substance: LEVOTHYROXINE SODIUM
  5. VITAMINS NOS [Concomitant]
     Active Substance: VITAMINS
  6. CARAFATE [Concomitant]
     Active Substance: SUCRALFATE
  7. LORAZEPAM [Concomitant]
     Active Substance: LORAZEPAM
  8. ALBUTEROL\IPRATROPIUM [Concomitant]
     Active Substance: ALBUTEROL\IPRATROPIUM
  9. ADVIL [Concomitant]
     Active Substance: IBUPROFEN
  10. ASPIRIN [Concomitant]
     Active Substance: ASPIRIN
  11. PROAIR HFA [Concomitant]
     Active Substance: ALBUTEROL SULFATE
  12. DIPHENHYDRAMINE [Concomitant]
     Active Substance: DIPHENHYDRAMINE
  13. EPINEPHRINE [Concomitant]
     Active Substance: EPINEPHRINE
  14. ACETAMINOPHEN [Concomitant]
     Active Substance: ACETAMINOPHEN
  15. AMLODIPINE [Concomitant]
     Active Substance: AMLODIPINE BESYLATE
  16. BENAZEPRIL [Concomitant]
     Active Substance: BENAZEPRIL HYDROCHLORIDE
  17. PROTONIX [Concomitant]
     Active Substance: PANTOPRAZOLE SODIUM
  18. LIDOCAINE [Concomitant]
     Active Substance: LIDOCAINE

REACTIONS (6)
  - COVID-19 pneumonia [Not Recovered/Not Resolved]
  - Blood pressure increased [Recovered/Resolved]
  - Infusion site pain [Recovered/Resolved]
  - Urinary tract infection [Unknown]
  - COVID-19 [Unknown]
  - Nasopharyngitis [Unknown]
